FAERS Safety Report 4921262-8 (Version None)
Quarter: 2006Q1

REPORT INFORMATION
  Report Type: 
  Country: None (occurrence: None)
  Receive Date: 20060222
  Receipt Date: 20060222
  Transmission Date: 20060701
  Serious: Yes (Death, Life-Threatening, Hospitalization)
  Sender: FDA-Public Use
  Company Number: None

PATIENT
  Age: 64 Year
  Sex: Female
  Weight: 64.4108 kg

DRUGS (14)
  1. TARCEVA [Suspect]
     Indication: PANCREATIC CARCINOMA
     Dosage: 150 MG PO QD
     Route: 048
     Dates: start: 20040311, end: 20051207
  2. XELODA [Suspect]
     Indication: PANCREATIC CARCINOMA
     Dosage: 500 MG/M2 PO Q12 HRS
     Route: 048
     Dates: start: 20040311, end: 20051206
  3. ATIVAN [Concomitant]
  4. CLEOCIN [Concomitant]
  5. ENBREL [Concomitant]
  6. PLAQUENIL [Concomitant]
  7. FOLIC ACID [Concomitant]
  8. HYDROCORTISONE CREAM [Concomitant]
  9. PROCRIT [Concomitant]
  10. ATARAX [Concomitant]
  11. ELIDEL [Concomitant]
  12. AMBIEN [Concomitant]
  13. LIDEX [Concomitant]
  14. SYNTHROID [Concomitant]

REACTIONS (5)
  - CEREBROVASCULAR ACCIDENT [None]
  - DISEASE PROGRESSION [None]
  - DRUG TOXICITY [None]
  - EMBOLIC STROKE [None]
  - POVERTY OF SPEECH [None]
